FAERS Safety Report 12656480 (Version 2)
Quarter: 2016Q3

REPORT INFORMATION
  Report Type: Spontaneous
  Country: JP (occurrence: JP)
  Receive Date: 20160816
  Receipt Date: 20160906
  Transmission Date: 20161109
  Serious: Yes (Death)
  Sender: FDA-Public Use
  Company Number: JP-OTSUKA-2016_019718

PATIENT
  Age: 6 Decade
  Sex: Male

DRUGS (1)
  1. SAMSCA 30 MG [Suspect]
     Active Substance: TOLVAPTAN
     Indication: CONGENITAL CYSTIC KIDNEY DISEASE
     Dosage: 90 MG, QD
     Route: 048
     Dates: start: 20160523

REACTIONS (1)
  - Multiple organ dysfunction syndrome [Fatal]
